FAERS Safety Report 21702131 (Version 1)
Quarter: 2022Q4

REPORT INFORMATION
  Report Type: Spontaneous
  Country: US (occurrence: US)
  Receive Date: 20221208
  Receipt Date: 20221208
  Transmission Date: 20230113
  Serious: No
  Sender: FDA-Public Use
  Company Number: US-ELI_LILLY_AND_COMPANY-US202211007980

PATIENT
  Sex: Female

DRUGS (1)
  1. HUMALOG [Suspect]
     Active Substance: INSULIN LISPRO
     Indication: Diabetes mellitus
     Dosage: 28 U, PRN (3 X A DAY AT MEALTIME)
     Route: 058

REACTIONS (2)
  - Blood glucose increased [Recovered/Resolved]
  - Incorrect dose administered [Recovered/Resolved]
